FAERS Safety Report 24857511 (Version 1)
Quarter: 2025Q1

REPORT INFORMATION
  Report Type: Spontaneous
  Country: CN (occurrence: CN)
  Receive Date: 20250117
  Receipt Date: 20250117
  Transmission Date: 20250409
  Serious: Yes (Hospitalization, Other)
  Sender: PFIZER
  Company Number: CN-PFIZER INC-PV202400146784

PATIENT
  Age: 13 Year
  Sex: Male

DRUGS (6)
  1. XYNTHA [Suspect]
     Active Substance: MOROCTOCOG ALFA
     Route: 042
     Dates: start: 20241106
  2. XYNTHA [Suspect]
     Active Substance: MOROCTOCOG ALFA
     Dosage: Q8H
     Route: 041
     Dates: start: 20241108
  3. XYNTHA [Suspect]
     Active Substance: MOROCTOCOG ALFA
     Dosage: 3000 IU, QD
     Route: 042
     Dates: start: 20241118
  4. XYNTHA [Suspect]
     Active Substance: MOROCTOCOG ALFA
     Dosage: 3000 IU, QD
     Route: 042
     Dates: start: 20241126
  5. XYNTHA [Suspect]
     Active Substance: MOROCTOCOG ALFA
     Dosage: 3000 IU, QOD
     Route: 042
     Dates: start: 20241206
  6. XYNTHA [Suspect]
     Active Substance: MOROCTOCOG ALFA
     Dosage: 1000 IU, QOD
     Dates: start: 20241225

REACTIONS (11)
  - Gastrointestinal haemorrhage [Unknown]
  - Haematochezia [Unknown]
  - Unresponsive to stimuli [Recovered/Resolved]
  - Amaurosis [Unknown]
  - Dizziness [Unknown]
  - Asthenia [Unknown]
  - Palpitations [Unknown]
  - Hyperhidrosis [Unknown]
  - Mental disorder [Unknown]
  - Decreased appetite [Unknown]
  - Off label use [Unknown]

NARRATIVE: CASE EVENT DATE: 20241101
